FAERS Safety Report 6488367-4 (Version None)
Quarter: 2009Q4

REPORT INFORMATION
  Report Type: 
  Country: None (occurrence: None)
  Receive Date: 20091123
  Receipt Date: 20091012
  Transmission Date: 20100525
  Serious: No
  Sender: FDA-Public Use
  Company Number: 8053241

PATIENT
  Age: 76 Year
  Sex: Male
  Weight: 58 kg

DRUGS (15)
  1. CIMZIA [Suspect]
     Indication: CROHN'S DISEASE
     Dosage: 400 MG /M SCS
     Route: 058
     Dates: start: 20090522, end: 20090813
  2. CIMZIA [Suspect]
     Indication: CROHN'S DISEASE
     Dosage: 400 MG 1/2W SC
     Route: 058
     Dates: start: 20090814
  3. ASPIRIN [Concomitant]
  4. LOPRESSOR [Concomitant]
  5. MAG OXIDE [Concomitant]
  6. MIRTAZAPINE [Concomitant]
  7. PROTONIX [Concomitant]
  8. TYLENOL (CAPLET) [Concomitant]
  9. LEVSIN [Concomitant]
  10. NEURONTIN [Concomitant]
  11. DEPAKOTE [Concomitant]
  12. CHROMAGEN [Concomitant]
  13. VITAMIN A [Concomitant]
  14. ASCORBIC ACID [Concomitant]
  15. PRENISONE [Concomitant]

REACTIONS (2)
  - DIARRHOEA [None]
  - PYREXIA [None]
